FAERS Safety Report 9562657 (Version 2)
Quarter: 2014Q1

REPORT INFORMATION
  Report Type: Spontaneous
  Country: US (occurrence: US)
  Receive Date: 20130927
  Receipt Date: 20140221
  Transmission Date: 20141002
  Serious: No
  Sender: FDA-Public Use
  Company Number: US-PFIZER INC-2013276684

PATIENT
  Age: 86 Year
  Sex: Female

DRUGS (11)
  1. CELEBREX [Suspect]
     Indication: BACK PAIN
     Dosage: 200 MG, 1X/DAY
     Dates: start: 20130322
  2. SYNTHROID [Concomitant]
     Indication: HYPOTHYROIDISM
     Dosage: 100 UG, 1X/DAY
     Dates: start: 20130827
  3. SYNTHROID [Concomitant]
     Dosage: 100 UG, 1X/DAY
     Dates: start: 20130319
  4. CYMBALTA [Concomitant]
     Indication: ASTHENIA
     Dosage: 20 MG, 1X/DAY
     Dates: start: 20130708
  5. PYRIDIUM [Concomitant]
     Indication: URINARY TRACT INFECTION
     Dosage: 200 MG, 3X/DAY
     Dates: start: 20130419
  6. ASPIR-81 [Concomitant]
     Indication: PERIPHERAL ARTERIAL OCCLUSIVE DISEASE
     Dosage: 81 MG, 1X/DAY
     Dates: start: 20130322
  7. ZETIA [Concomitant]
     Dosage: 10 MG, 1X/DAY
     Dates: start: 20121212
  8. PRILOSEC [Concomitant]
     Dosage: 20 MG, 1X/DAY
     Dates: start: 20120125
  9. VITAMIN D [Concomitant]
     Dosage: 1000 IU, 1X/DAY
     Dates: start: 20110131
  10. CENTRUM SILVER [Concomitant]
     Dosage: 1 DF, 1X/DAY
     Route: 048
  11. B-12 [Concomitant]
     Dosage: 500 UG, 1X/DAY

REACTIONS (1)
  - Hypersensitivity [Unknown]
